FAERS Safety Report 6738505-0 (Version None)
Quarter: 2010Q2

REPORT INFORMATION
  Report Type: 
  Country: None (occurrence: None)
  Receive Date: 20100524
  Receipt Date: 20100512
  Transmission Date: 20101027
  Serious: Yes (Other)
  Sender: FDA-Public Use
  Company Number: PHHY2010AT30475

PATIENT
  Age: 74 Year
  Sex: Female
  Weight: 63 kg

DRUGS (7)
  1. ALISKIREN ALI+ [Suspect]
     Dosage: 300 MG
     Dates: start: 20090824
  2. RASILEZ HCT [Suspect]
     Dosage: 300/25 UNK
     Dates: start: 20091201
  3. TEVETEN [Concomitant]
     Dosage: 600 MG
     Dates: start: 20090701, end: 20091201
  4. CARVEDILOL [Concomitant]
     Dosage: 25 MG
     Dates: start: 20091201
  5. CARVEDILOL [Concomitant]
     Dosage: UNK
     Dates: start: 20100119
  6. ITERIUM [Concomitant]
     Dosage: 1 MG
     Dates: end: 20091201
  7. ZANIDIP [Concomitant]
     Dosage: UNK
     Dates: start: 20100119

REACTIONS (2)
  - ATRIAL FIBRILLATION [None]
  - BLOOD PRESSURE INCREASED [None]
